FAERS Safety Report 6622784-4 (Version None)
Quarter: 2010Q1

REPORT INFORMATION
  Report Type: 
  Country: None (occurrence: None)
  Receive Date: 20100310
  Receipt Date: 20100301
  Transmission Date: 20100710
  Serious: Yes (Hospitalization)
  Sender: FDA-Public Use
  Company Number: SE-JNJFOC-20100300572

PATIENT
  Age: 68 Year
  Sex: Female

DRUGS (8)
  1. REMICADE [Suspect]
     Indication: RHEUMATOID ARTHRITIS
     Route: 042
  2. ENBREL [Suspect]
     Indication: RHEUMATOID ARTHRITIS
     Route: 058
  3. OPTINATE [Concomitant]
  4. KALCIPOS-D [Concomitant]
  5. METHOTREXATE [Concomitant]
  6. FOLACIN [Concomitant]
  7. PREDNISOLONE [Concomitant]
  8. NAPROXEN [Concomitant]

REACTIONS (1)
  - METASTATIC UTERINE CANCER [None]
